FAERS Safety Report 4467848-9 (Version None)
Quarter: 2004Q4

REPORT INFORMATION
  Report Type: 
  Country: None (occurrence: None)
  Receive Date: 20041004
  Receipt Date: 20040908
  Transmission Date: 20050328
  Serious: Yes (Death, Hospitalization, Other)
  Sender: FDA-Public Use
  Company Number: 2004070917

PATIENT
  Age: 88 Year
  Sex: Female

DRUGS (6)
  1. ZOLOFT [Suspect]
     Indication: ILL-DEFINED DISORDER
     Dosage: 50 MG, 1 IN 1 D), ORAL
     Route: 048
  2. ARICEPT [Suspect]
     Indication: DEMENTIA ALZHEIMER'S TYPE
     Dosage: 10 MG, 1 IN 1 D, ORAL
     Route: 048
     Dates: start: 20040622, end: 20040803
  3. ACENOCOUMAROL (ACENOCOUMAROL) [Concomitant]
     Indication: ILL-DEFINED DISORDER
     Dosage: ORAL
     Route: 048
     Dates: end: 20040803
  4. LEVOTHYROXINE SODIUM [Concomitant]
  5. ENALAPRIL MALEATE [Concomitant]
  6. OSYROL-LASIX (FUROSEMIDE, SPIRONOLACTONE) [Concomitant]

REACTIONS (17)
  - ATRIAL FIBRILLATION [None]
  - BLOOD PRESSURE DIASTOLIC DECREASED [None]
  - BUNDLE BRANCH BLOCK RIGHT [None]
  - CEREBRAL HAEMATOMA [None]
  - CONFUSIONAL STATE [None]
  - CONVULSION [None]
  - DECEREBRATION [None]
  - EXTENSOR PLANTAR RESPONSE [None]
  - FALL [None]
  - HAEMORRHAGIC STROKE [None]
  - INTRACRANIAL INJURY [None]
  - MYDRIASIS [None]
  - MYOCLONIC EPILEPSY [None]
  - OVERDOSE [None]
  - RENAL FAILURE [None]
  - TREMOR [None]
  - VENTRICULAR FAILURE [None]
